FAERS Safety Report 17355958 (Version 1)
Quarter: 2020Q1

REPORT INFORMATION
  Report Type: Spontaneous
  Country: FR (occurrence: FR)
  Receive Date: 20200131
  Receipt Date: 20200131
  Transmission Date: 20200409
  Serious: Yes (Hospitalization)
  Sender: FDA-Public Use
  Company Number: FR-MYLANLABS-2020M1010976

PATIENT
  Age: 77 Year
  Sex: Male
  Weight: 72 kg

DRUGS (2)
  1. ESOMEPRAZOLE. [Suspect]
     Active Substance: ESOMEPRAZOLE MAGNESIUM
     Indication: PROPHYLAXIS AGAINST GASTROINTESTINAL ULCER
     Dosage: 40 MILLIGRAM, QD
     Route: 048
     Dates: start: 201901, end: 201909
  2. METEOXANE                          /08328901/ [Suspect]
     Active Substance: DIMETHICONE\PHLOROGLUCINOL
     Indication: GASTROINTESTINAL DISORDER
     Dosage: 4 ? 6/J
     Route: 048
     Dates: start: 201905, end: 201909

REACTIONS (3)
  - Renal tubular necrosis [Recovering/Resolving]
  - Chronic kidney disease [Recovering/Resolving]
  - Renal tubular disorder [Recovering/Resolving]

NARRATIVE: CASE EVENT DATE: 20190920
